FAERS Safety Report 24383892 (Version 1)
Quarter: 2024Q4

REPORT INFORMATION
  Report Type: Spontaneous
  Country: CN (occurrence: CN)
  Receive Date: 20241001
  Receipt Date: 20241001
  Transmission Date: 20250115
  Serious: Yes (Life-Threatening)
  Sender: ROCHE
  Company Number: CN-BoehringerIngelheim-2024-BI-053557

PATIENT
  Age: 85 Year
  Sex: Male
  Weight: 85.0 kg

DRUGS (2)
  1. ALTEPLASE [Suspect]
     Active Substance: ALTEPLASE
     Indication: Cerebral infarction
     Dosage: IV BOLUS WITHIN 1 MINUTE
     Route: 042
     Dates: start: 20240908, end: 20240908
  2. ALTEPLASE [Suspect]
     Active Substance: ALTEPLASE
     Dosage: IV PUMP WITHIN 1 HOUR
     Route: 042
     Dates: start: 20240908, end: 20240908

REACTIONS (4)
  - Cerebral haemorrhage [Not Recovered/Not Resolved]
  - Oxygen saturation decreased [Not Recovered/Not Resolved]
  - Subdural haematoma [Not Recovered/Not Resolved]
  - Off label use [Unknown]

NARRATIVE: CASE EVENT DATE: 20240908
